FAERS Safety Report 20503286 (Version 1)
Quarter: 2022Q1

REPORT INFORMATION
  Report Type: Spontaneous
  Country: US (occurrence: None)
  Receive Date: 20220222
  Receipt Date: 20220222
  Transmission Date: 20220423
  Serious: Yes (Hospitalization)
  Sender: FDA-Public Use
  Company Number: None

PATIENT
  Sex: Male

DRUGS (1)
  1. ALBUTEROL [Suspect]
     Active Substance: ALBUTEROL
     Indication: Cystic fibrosis
     Dosage: (2.5 MG/3ML ) 0.083%?INHALE 1 VIAL VIA NEBULIZER TWICE DAILY?
     Route: 055

REACTIONS (1)
  - Respiratory syncytial virus infection [None]
